FAERS Safety Report 26150692 (Version 2)
Quarter: 2025Q4

REPORT INFORMATION
  Report Type: Report from Study
  Country: GB (occurrence: GB)
  Receive Date: 20251212
  Receipt Date: 20251217
  Transmission Date: 20260117
  Serious: Yes (Other)
  Sender: ABBVIE
  Company Number: GB-ABBVIE-6584585

PATIENT
  Age: 69 Year
  Sex: Female

DRUGS (1)
  1. SKYRIZI [Suspect]
     Active Substance: RISANKIZUMAB-RZAA
     Indication: Crohn^s disease
     Dosage: SKYRIZI 360MG/2.4ML,DOSAGE FORM: SOLUTION FOR INJECTION CARTRIDGE ON-BODY DEVICE.
     Route: 058
     Dates: start: 20251014

REACTIONS (4)
  - Renal failure [Unknown]
  - Alopecia [Unknown]
  - Adrenal insufficiency [Unknown]
  - Oedema peripheral [Unknown]

NARRATIVE: CASE EVENT DATE: 20251201
